FAERS Safety Report 11433845 (Version 1)
Quarter: 2015Q3

REPORT INFORMATION
  Report Type: Spontaneous
  Country: US (occurrence: US)
  Receive Date: 20150831
  Receipt Date: 20150831
  Transmission Date: 20151125
  Serious: No
  Sender: FDA-Public Use
  Company Number: US-BAYER-2015-410312

PATIENT
  Age: 79 Year
  Sex: Female
  Weight: 63.49 kg

DRUGS (4)
  1. ASPIRIN. [Concomitant]
     Active Substance: ASPIRIN
  2. OXYTROL FOR WOMEN [Suspect]
     Active Substance: OXYBUTYNIN
     Indication: HYPERTONIC BLADDER
     Dosage: 1 PATCH, EVERY FOUR DAYS
     Route: 061
     Dates: start: 2013, end: 20150826
  3. HYDROCODONE [Concomitant]
     Active Substance: HYDROCODONE
  4. PRAVASTATIN [Concomitant]
     Active Substance: PRAVASTATIN\PRAVASTATIN SODIUM

REACTIONS (2)
  - Product use issue [None]
  - Dizziness [None]

NARRATIVE: CASE EVENT DATE: 20150826
